FAERS Safety Report 5455060-6 (Version None)
Quarter: 2007Q3

REPORT INFORMATION
  Report Type: 
  Country: None (occurrence: None)
  Receive Date: 20070913
  Receipt Date: 20070823
  Transmission Date: 20080115
  Serious: Yes (Hospitalization)
  Sender: FDA-Public Use
  Company Number: 6037428

PATIENT
  Age: 17 Year
  Sex: Male

DRUGS (1)
  1. CLARITHROMYCIN [Suspect]
     Indication: SINUSITIS
     Dosage: 1000 MG (500 MG, 2 IN 1 D)

REACTIONS (4)
  - DYSPNOEA [None]
  - EOSINOPHILIA [None]
  - LUNG INFILTRATION [None]
  - WHEEZING [None]
